FAERS Safety Report 12474724 (Version 1)
Quarter: 2016Q2

REPORT INFORMATION
  Report Type: Spontaneous
  Country: US (occurrence: None)
  Receive Date: 20160616
  Receipt Date: 20160616
  Transmission Date: 20160815
  Serious: Yes (Life-Threatening, Hospitalization)
  Sender: FDA-Public Use
  Company Number: None

PATIENT
  Age: 79 Year
  Sex: Female
  Weight: 72 kg

DRUGS (1)
  1. TRANEXAMIC ACID. [Suspect]
     Active Substance: TRANEXAMIC ACID
     Indication: PROCEDURAL HAEMORRHAGE
     Dosage: 1000 MG NOW INTRAVENOUS DRIP
     Route: 041

REACTIONS (8)
  - Pleural effusion [None]
  - Electrocardiogram ST-T segment abnormal [None]
  - Heart rate increased [None]
  - Pulmonary embolism [None]
  - Pulmonary infarction [None]
  - Supraventricular extrasystoles [None]
  - Endotracheal intubation complication [None]
  - Hypotension [None]

NARRATIVE: CASE EVENT DATE: 20160503
